FAERS Safety Report 14056801 (Version 1)
Quarter: 2017Q4

REPORT INFORMATION
  Report Type: Spontaneous
  Country: DE (occurrence: DE)
  Receive Date: 20171006
  Receipt Date: 20171006
  Transmission Date: 20180321
  Serious: Yes (Hospitalization)
  Sender: FDA-Public Use
  Company Number: DE-TEVA-811187GER

PATIENT
  Age: 6 Year
  Sex: Female
  Weight: 17 kg

DRUGS (3)
  1. SULTIAM [Concomitant]
     Indication: ATYPICAL BENIGN PARTIAL EPILEPSY
     Dosage: 150 MILLIGRAM DAILY;
     Route: 048
     Dates: start: 201508
  2. ORFIRIL LONG [Concomitant]
     Active Substance: VALPROIC ACID
     Indication: ATYPICAL BENIGN PARTIAL EPILEPSY
     Dosage: 600 MILLIGRAM DAILY;
     Route: 048
     Dates: start: 201604
  3. ZONISAMID [Suspect]
     Active Substance: ZONISAMIDE
     Indication: ATYPICAL BENIGN PARTIAL EPILEPSY
     Dosage: 25 MILLIGRAM DAILY;
     Route: 048
     Dates: start: 201704, end: 20170424

REACTIONS (3)
  - Joint warmth [Recovering/Resolving]
  - Drug eruption [Recovering/Resolving]
  - Joint swelling [Recovering/Resolving]

NARRATIVE: CASE EVENT DATE: 201704
